FAERS Safety Report 5729121-8 (Version None)
Quarter: 2008Q2

REPORT INFORMATION
  Report Type: 
  Country: None (occurrence: None)
  Receive Date: 20080506
  Receipt Date: 20080425
  Transmission Date: 20081010
  Serious: Yes (Other)
  Sender: FDA-Public Use
  Company Number: US-PFIZER INC-2008036853

PATIENT
  Sex: Female

DRUGS (18)
  1. LIPITOR [Suspect]
  2. LYRICA [Suspect]
  3. TRACLEER [Suspect]
     Indication: PULMONARY HYPERTENSION
     Route: 048
  4. AMARYL [Concomitant]
  5. GLUCOPHAGE [Concomitant]
  6. QUINAPRIL [Concomitant]
  7. ISOSORBIDE DINITRATE [Concomitant]
  8. VERAPAMIL [Concomitant]
  9. SYNTHROID [Concomitant]
  10. GABAPENTIN [Concomitant]
  11. FEXOFENADINE [Concomitant]
  12. FOLIC ACID [Concomitant]
  13. ELMIRON [Concomitant]
  14. AMITRIPTLINE HCL [Concomitant]
  15. ACETYLSALICYLIC ACID SRT [Concomitant]
  16. PREDNISONE [Concomitant]
  17. SPIRIVA [Concomitant]
  18. RHINOCORT [Concomitant]

REACTIONS (5)
  - FATIGUE [None]
  - JAUNDICE [None]
  - LIVER FUNCTION TEST ABNORMAL [None]
  - MALAISE [None]
  - MYALGIA [None]
